FAERS Safety Report 7529487-2 (Version None)
Quarter: 2011Q2

REPORT INFORMATION
  Report Type: 
  Country: None (occurrence: None)
  Receive Date: 20110607
  Receipt Date: 20050704
  Transmission Date: 20111010
  Serious: Yes (Death)
  Sender: FDA-Public Use
  Company Number: PHHO2005CA05110

PATIENT
  Sex: Male

DRUGS (1)
  1. CLOZARIL [Suspect]
     Indication: SCHIZOPHRENIA
     Dosage: 400 MG, QHS
     Route: 048
     Dates: start: 20010424

REACTIONS (4)
  - TACHYCARDIA [None]
  - VOMITING [None]
  - HYPERVENTILATION [None]
  - FALL [None]
